FAERS Safety Report 4988954-6 (Version None)
Quarter: 2006Q2

REPORT INFORMATION
  Report Type: 
  Country: None (occurrence: None)
  Receive Date: 20060425
  Receipt Date: 20060413
  Transmission Date: 20061013
  Serious: Yes (Other)
  Sender: FDA-Public Use
  Company Number: 2006S1003301

PATIENT
  Age: 24 Year
  Sex: Female
  Weight: 83.9154 kg

DRUGS (6)
  1. FENTANYL TRANSDERMAL SYSTEM [Suspect]
     Indication: BACK PAIN
     Dosage: 25 UG/HR/Q3D/TRANS
     Route: 062
     Dates: start: 20060324
  2. FENTANYL TRANSDERMAL SYSTEM [Suspect]
     Indication: INTERVERTEBRAL DISC DISORDER
     Dosage: 25 UG/HR/Q3D/TRANS
     Route: 062
     Dates: start: 20060324
  3. FENTANYL TRANSDERMAL SYSTEM [Suspect]
     Indication: INTERVERTEBRAL DISC PROTRUSION
     Dosage: 25 UG/HR/Q3D/TRANS
     Route: 062
     Dates: start: 20060324
  4. PARACETAMOL/OXYCODONE HYDROCHLORIDE [Concomitant]
  5. DIAZEPAM [Concomitant]
  6. HYDROCHLOROTHIAZIDE/CANDESARTAN CILEXETIL [Concomitant]

REACTIONS (4)
  - BACK PAIN [None]
  - DIFFICULTY IN WALKING [None]
  - PAIN [None]
  - PHARMACEUTICAL PRODUCT COMPLAINT [None]
